FAERS Safety Report 22208491 (Version 1)
Quarter: 2023Q2

REPORT INFORMATION
  Report Type: Other
  Country: US (occurrence: US)
  Receive Date: 20230413
  Receipt Date: 20230413
  Transmission Date: 20230721
  Serious: No
  Sender: FDA-Public Use
  Company Number: US-TRAVERE-2022TVT00573

PATIENT
  Age: 8 Year
  Sex: Female

DRUGS (2)
  1. CHOLIC ACID [Suspect]
     Active Substance: CHOLIC ACID
     Indication: Disease susceptibility
     Route: 048
     Dates: start: 20220607
  2. GUAIFENESIN AC [Concomitant]
     Active Substance: CODEINE PHOSPHATE\GUAIFENESIN

REACTIONS (1)
  - Influenza like illness [Unknown]
